FAERS Safety Report 14078008 (Version 1)
Quarter: 2017Q4

REPORT INFORMATION
  Report Type: Spontaneous
  Country: US (occurrence: US)
  Receive Date: 20171012
  Receipt Date: 20171012
  Transmission Date: 20180321
  Serious: No
  Sender: FDA-Public Use
  Company Number: US-MYLANLABS-2017M1015113

PATIENT
  Sex: Female

DRUGS (2)
  1. QUININE SULFATE CAPSULES, USP 324 MG [Suspect]
     Active Substance: QUININE
     Indication: PAIN IN EXTREMITY
     Dosage: 324 MG, Q PM
     Route: 048
     Dates: start: 20170307
  2. QUININE SULFATE CAPSULES, USP 324 MG [Suspect]
     Active Substance: QUININE
     Indication: MUSCLE SPASMS

REACTIONS (2)
  - Headache [Not Recovered/Not Resolved]
  - Dysgeusia [Not Recovered/Not Resolved]

NARRATIVE: CASE EVENT DATE: 20170307
